FAERS Safety Report 8854430 (Version 2)
Quarter: 2014Q2

REPORT INFORMATION
  Report Type: Report from Study
  Country: US (occurrence: US)
  Receive Date: 20121023
  Receipt Date: 20140109
  Transmission Date: 20141212
  Serious: Yes (Death)
  Sender: FDA-Public Use
  Company Number: US-ROCHE-1147944

PATIENT
  Age: 72 Year
  Sex: Male
  Weight: 90.89 kg

DRUGS (12)
  1. AVASTIN [Suspect]
     Indication: MALIGNANT MELANOMA
     Route: 050
     Dates: start: 20120206
  2. AVASTIN [Suspect]
     Indication: METASTASES TO LUNG
  3. PACLITAXEL [Concomitant]
     Route: 050
  4. CARBOPLATIN [Concomitant]
     Route: 041
  5. PALONOSETRON [Concomitant]
     Route: 042
  6. DEXAMETHASONE SODIUM PHOSPHATE [Concomitant]
     Route: 042
  7. FOSAPREPITANT DIMEGLUMINE [Concomitant]
     Route: 042
  8. DIPHENHYDRAMINE HCL [Concomitant]
     Route: 042
  9. RANITIDINE [Concomitant]
     Route: 042
  10. HYDROCORTISONE SODIUM SUCCINATE [Concomitant]
     Route: 042
  11. METHYLPREDNISOLONE SODIUM SUCCINATE [Concomitant]
     Route: 042
  12. NEULASTA [Concomitant]
     Route: 058

REACTIONS (3)
  - Death [Fatal]
  - Off label use [Unknown]
  - Neutropenia [Unknown]
